FAERS Safety Report 4501999-5 (Version None)
Quarter: 2004Q4

REPORT INFORMATION
  Report Type: 
  Country: None (occurrence: None)
  Receive Date: 20041116
  Receipt Date: 20041109
  Transmission Date: 20050328
  Serious: Yes (Life-Threatening)
  Sender: FDA-Public Use
  Company Number: TH-BRISTOL-MYERS SQUIBB COMPANY-12759619

PATIENT
  Age: 78 Year
  Sex: Male

DRUGS (4)
  1. TEQUIN [Suspect]
     Dosage: EXP.: ^31/11/05^
     Route: 048
     Dates: start: 20040807, end: 20040812
  2. GLUCOPHAGE [Concomitant]
  3. AMARYL [Concomitant]
  4. PLAVIX [Concomitant]

REACTIONS (1)
  - HYPOGLYCAEMIA [None]
